FAERS Safety Report 4492437-X (Version None)
Quarter: 2004Q4

REPORT INFORMATION
  Report Type: 
  Country: None (occurrence: None)
  Receive Date: 20041029
  Receipt Date: 20041019
  Transmission Date: 20050328
  Serious: Yes (Life-Threatening, Hospitalization, Disabling, Other)
  Sender: FDA-Public Use
  Company Number: 2004056114

PATIENT
  Age: 69 Year
  Sex: Female
  Weight: 90 kg

DRUGS (10)
  1. SORTIS (ATORVASTATIN) [Suspect]
     Indication: HYPERLIPIDAEMIA
     Dosage: 20 MG (20 MG, 1 IN 1 D), ORAL
     Route: 048
  2. RAMIPRIL [Concomitant]
  3. LEVOTHYROXINE SODIUM [Concomitant]
  4. ALLOPURINOL [Concomitant]
  5. GABAPENTIN [Concomitant]
  6. INSULIN [Concomitant]
  7. GABAPENTIN [Concomitant]
  8. BISOPROLOL FUMARATE [Concomitant]
  9. TRAMADOL HCL [Concomitant]
  10. PANTOPRAZOLE SODIUM [Concomitant]

REACTIONS (50)
  - ACTIVATED PARTIAL THROMBOPLASTIN TIME PROLONGED [None]
  - ANAEMIA [None]
  - AUTOIMMUNE DISORDER [None]
  - BLISTER [None]
  - BLOOD BILIRUBIN INCREASED [None]
  - BLOOD CHLORIDE INCREASED [None]
  - BLOOD CREATINE PHOSPHOKINASE INCREASED [None]
  - BLOOD CREATINE PHOSPHOKINASE MB INCREASED [None]
  - BLOOD CREATININE INCREASED [None]
  - BLOOD UREA INCREASED [None]
  - C-REACTIVE PROTEIN INCREASED [None]
  - CANDIDIASIS [None]
  - CATHETER RELATED COMPLICATION [None]
  - DERMATITIS [None]
  - DERMATITIS BULLOUS [None]
  - DIALYSIS [None]
  - DIARRHOEA [None]
  - DYSAESTHESIA [None]
  - ENTERITIS [None]
  - EXANTHEM [None]
  - GASTRIC ULCER [None]
  - GASTROENTERITIS [None]
  - GASTROINTESTINAL HAEMORRHAGE [None]
  - GUILLAIN-BARRE SYNDROME [None]
  - HYPERTENSION [None]
  - HYPOKALAEMIA [None]
  - INTERNATIONAL NORMALISED RATIO INCREASED [None]
  - MENTAL DISORDER DUE TO A GENERAL MEDICAL CONDITION [None]
  - MYOGLOBIN BLOOD INCREASED [None]
  - MYOPATHY [None]
  - NAUSEA [None]
  - NECROSIS [None]
  - OEDEMA [None]
  - PAIN [None]
  - PAIN IN EXTREMITY [None]
  - PARAPARESIS [None]
  - POLYNEUROPATHY [None]
  - PROTHROMBIN TIME SHORTENED [None]
  - QUADRIPARESIS [None]
  - RASH [None]
  - RENAL FAILURE ACUTE [None]
  - RETICULOCYTE COUNT INCREASED [None]
  - RHABDOMYOLYSIS [None]
  - SEPSIS [None]
  - SERUM FERRITIN INCREASED [None]
  - SKIN DISCOLOURATION [None]
  - SUPERINFECTION [None]
  - URINARY TRACT INFECTION [None]
  - URINARY TRACT INFECTION ENTEROCOCCAL [None]
  - YERSINIA INFECTION [None]
